FAERS Safety Report 25425216 (Version 2)
Quarter: 2025Q2

REPORT INFORMATION
  Report Type: Spontaneous
  Country: FR (occurrence: FR)
  Receive Date: 20250611
  Receipt Date: 20250616
  Transmission Date: 20250717
  Serious: Yes (Other)
  Sender: BRISTOL-MYERS SQUIBB COMPANY
  Company Number: FR-BRISTOL-MYERS SQUIBB COMPANY-2025-081702

PATIENT
  Age: 64 Year
  Sex: Male
  Weight: 87 kg

DRUGS (6)
  1. ELIQUIS [Suspect]
     Active Substance: APIXABAN
     Indication: Atrial fibrillation
     Route: 048
  2. KETOPROFEN [Concomitant]
     Active Substance: KETOPROFEN
     Indication: Back pain
  3. FLECAINIDE [Concomitant]
     Active Substance: FLECAINIDE
     Indication: Product used for unknown indication
  4. BISOPROLOL [Concomitant]
     Active Substance: BISOPROLOL
     Indication: Product used for unknown indication
  5. VALSARTAN [Concomitant]
     Active Substance: VALSARTAN
     Indication: Product used for unknown indication
  6. UNSPECIFIED INGREDIENT [Concomitant]
     Active Substance: UNSPECIFIED INGREDIENT
     Indication: Prophylaxis against gastrointestinal ulcer

REACTIONS (5)
  - Cardiac flutter [Unknown]
  - Ventricular extrasystoles [Unknown]
  - Back pain [Unknown]
  - Atrial fibrillation [Not Recovered/Not Resolved]
  - Haematoma [Unknown]
